FAERS Safety Report 5033360-1 (Version None)
Quarter: 2006Q2

REPORT INFORMATION
  Report Type: 
  Country: None (occurrence: None)
  Receive Date: 20060620
  Receipt Date: 20060607
  Transmission Date: 20061013
  Serious: Yes (Hospitalization)
  Sender: FDA-Public Use
  Company Number: 2006070564

PATIENT
  Age: 48 Year
  Sex: Male

DRUGS (2)
  1. GEODON [Suspect]
     Indication: PSYCHOTIC DISORDER
     Dosage: 160 MG (160 MG, 1 IN 1 D), ORAL
     Route: 048
     Dates: start: 20050517, end: 20060201
  2. FLUOXETINE [Suspect]
     Indication: ILL-DEFINED DISORDER
     Dosage: ORAL
     Route: 048
     Dates: start: 20051201, end: 20060201

REACTIONS (6)
  - BLOOD OSMOLARITY DECREASED [None]
  - CONVULSION [None]
  - DRUG INTERACTION [None]
  - HYPONATRAEMIA [None]
  - NAUSEA [None]
  - VOMITING [None]
